FAERS Safety Report 14675539 (Version 1)
Quarter: 2018Q1

REPORT INFORMATION
  Report Type: Report from Study
  Country: DE (occurrence: DE)
  Receive Date: 20180323
  Receipt Date: 20180323
  Transmission Date: 20180509
  Serious: Yes (Hospitalization, Other)
  Sender: FDA-Public Use
  Company Number: DE-GLAXOSMITHKLINE-DE2018045089

PATIENT
  Age: 65 Year
  Sex: Male
  Weight: 89 kg

DRUGS (11)
  1. HUMIRA [Suspect]
     Active Substance: ADALIMUMAB
     Indication: PSORIASIS
     Dosage: 40 MG, UNK
     Route: 058
     Dates: start: 20160811, end: 20170528
  2. AMLODIPINE [Concomitant]
     Active Substance: AMLODIPINE BESYLATE
     Indication: PRODUCT USED FOR UNKNOWN INDICATION
     Dosage: UNK
     Route: 048
  3. MOMETASONE [Concomitant]
     Active Substance: MOMETASONE
     Indication: PRODUCT USED FOR UNKNOWN INDICATION
     Dosage: 50 MG, UNK
     Route: 045
  4. MOXONIDIN [Concomitant]
     Active Substance: MOXONIDINE
     Indication: PRODUCT USED FOR UNKNOWN INDICATION
     Dosage: DAILY DOSE: 0.6 MG MILLGRAM(S) EVERY DAYS
     Route: 065
  5. NICOTINE. [Suspect]
     Active Substance: NICOTINE
     Indication: PRODUCT USED FOR UNKNOWN INDICATION
     Dosage: UNK
     Route: 065
  6. BEROTEC [Concomitant]
     Active Substance: FENOTEROL HYDROBROMIDE
     Indication: PRODUCT USED FOR UNKNOWN INDICATION
     Dosage: AS NECESSARY
     Route: 065
  7. BICANORM [Concomitant]
     Active Substance: SODIUM BICARBONATE
     Indication: PRODUCT USED FOR UNKNOWN INDICATION
     Dosage: DAILY DOSE: 1.8 MG MILLGRAM(S) EVERY DAYS
     Route: 065
  8. ETHAMBUTOL [Concomitant]
     Active Substance: ETHAMBUTOL HYDROCHLORIDE
     Indication: PRODUCT USED FOR UNKNOWN INDICATION
     Dosage: DAILY DOSE: 700 MG MILLGRAM(S) EVERY DAYS
     Route: 065
     Dates: start: 2017
  9. NOVALGIN (METAMIZOLE SODIUM) [Concomitant]
     Active Substance: METAMIZOLE SODIUM
     Indication: PRODUCT USED FOR UNKNOWN INDICATION
     Dosage: AS NECESSARY
     Route: 065
  10. RAMIPRIL. [Concomitant]
     Active Substance: RAMIPRIL
     Indication: PRODUCT USED FOR UNKNOWN INDICATION
     Dosage: UNK
     Route: 048
  11. FOSTER [Concomitant]
     Active Substance: BECLOMETHASONE\FORMOTEROL
     Indication: PRODUCT USED FOR UNKNOWN INDICATION
     Dosage: 100/6?G
     Route: 065

REACTIONS (27)
  - Lung neoplasm malignant [Recovered/Resolved]
  - International normalised ratio decreased [Unknown]
  - Renal tubular dysfunction [Unknown]
  - Hyperparathyroidism secondary [Unknown]
  - Metabolic acidosis [Unknown]
  - Proteinuria [Unknown]
  - Tobacco abuse [Unknown]
  - Tuberculosis [Not Recovered/Not Resolved]
  - Mucosal atrophy [Unknown]
  - Blood triglycerides increased [Unknown]
  - Blood creatinine increased [Recovering/Resolving]
  - Lymphadenopathy [Unknown]
  - Monocyte count increased [Unknown]
  - Blood potassium increased [Recovering/Resolving]
  - Blood glucose increased [Unknown]
  - Haematocrit decreased [Not Recovered/Not Resolved]
  - Alpha 1 globulin increased [Unknown]
  - Immunoglobulins increased [Unknown]
  - Blood cholesterol increased [Unknown]
  - Nucleated red cells [Recovered/Resolved]
  - Lymphadenopathy mediastinal [Recovering/Resolving]
  - Paranasal cyst [Unknown]
  - Pulmonary function test decreased [Unknown]
  - Haemoglobin decreased [Not Recovered/Not Resolved]
  - Pulmonary granuloma [Recovering/Resolving]
  - Bronchial carcinoma [Recovered/Resolved]
  - Pulmonary sarcoidosis [Unknown]

NARRATIVE: CASE EVENT DATE: 2017
